FAERS Safety Report 11675231 (Version 2)
Quarter: 2015Q4

REPORT INFORMATION
  Report Type: Report from Study
  Country: CA (occurrence: CA)
  Receive Date: 20151028
  Receipt Date: 20151110
  Transmission Date: 20160304
  Serious: No
  Sender: FDA-Public Use
  Company Number: CA-ABBVIE-15K-028-1487581-00

PATIENT
  Age: 67 Year
  Sex: Female
  Weight: 108.96 kg

DRUGS (1)
  1. HUMIRA [Suspect]
     Active Substance: ADALIMUMAB
     Indication: PSORIATIC ARTHROPATHY
     Route: 058
     Dates: start: 20090426, end: 20150927

REACTIONS (1)
  - Fall [Unknown]

NARRATIVE: CASE EVENT DATE: 201506
